FAERS Safety Report 10210231 (Version 4)
Quarter: 2016Q1

REPORT INFORMATION
  Report Type: Spontaneous
  Country: US (occurrence: US)
  Receive Date: 20140602
  Receipt Date: 20160314
  Transmission Date: 20160525
  Serious: Yes (Hospitalization, Disabling, Other)
  Sender: FDA-Public Use
  Company Number: US-009507513-1405USA014081

PATIENT
  Sex: Female
  Weight: 54.42 kg

DRUGS (4)
  1. FOSAMAX [Suspect]
     Active Substance: ALENDRONATE SODIUM
     Indication: OSTEOPOROSIS
     Dosage: 5 MG, UNK
     Route: 048
     Dates: start: 1995, end: 2005
  2. FOSAMAX [Suspect]
     Active Substance: ALENDRONATE SODIUM
     Indication: OSTEOPENIA
  3. ACTONEL [Suspect]
     Active Substance: RISEDRONATE SODIUM
     Indication: OSTEOPOROSIS
     Dosage: 35 MG, UNK
     Route: 065
     Dates: start: 2005, end: 2011
  4. ACTONEL [Suspect]
     Active Substance: RISEDRONATE SODIUM
     Indication: OSTEOPENIA

REACTIONS (24)
  - Stress fracture [Not Recovered/Not Resolved]
  - Gastrooesophageal reflux disease [Unknown]
  - Rheumatoid arthritis [Unknown]
  - Arthritis [Unknown]
  - Back pain [Unknown]
  - Irritable bowel syndrome [Unknown]
  - Appendicectomy [Unknown]
  - Low turnover osteopathy [Not Recovered/Not Resolved]
  - Arthralgia [Unknown]
  - Musculoskeletal chest pain [Unknown]
  - Cholecystectomy [Unknown]
  - Femur fracture [Recovered/Resolved]
  - Fear [Unknown]
  - Asthma [Unknown]
  - Hysterectomy [Unknown]
  - Scoliosis [Unknown]
  - Anxiety [Unknown]
  - Osteoporosis [Not Recovered/Not Resolved]
  - Femur fracture [Not Recovered/Not Resolved]
  - Tooth extraction [Unknown]
  - Soft tissue mass [Unknown]
  - Lipoma [Unknown]
  - Stress urinary incontinence [Unknown]
  - Cataract [Unknown]

NARRATIVE: CASE EVENT DATE: 2006
